FAERS Safety Report 5753672-3 (Version None)
Quarter: 2008Q2

REPORT INFORMATION
  Report Type: 
  Country: None (occurrence: None)
  Receive Date: 20080527
  Receipt Date: 20080509
  Transmission Date: 20081010
  Serious: Yes (Hospitalization)
  Sender: FDA-Public Use
  Company Number: 2008ST000103

PATIENT
  Age: 70 Year
  Sex: Female

DRUGS (2)
  1. ZEGERID [Suspect]
     Indication: GASTROOESOPHAGEAL REFLUX DISEASE
     Dosage: 40 MG;QD;PO
     Route: 048
     Dates: start: 20080317, end: 20080321
  2. HYZAAR [Concomitant]

REACTIONS (1)
  - CARDIAC FAILURE CONGESTIVE [None]
